FAERS Safety Report 9318425 (Version 1)
Quarter: 2013Q2

REPORT INFORMATION
  Report Type: Spontaneous
  Country: US (occurrence: US)
  Receive Date: 20130530
  Receipt Date: 20130530
  Transmission Date: 20140414
  Serious: No
  Sender: FDA-Public Use
  Company Number: US-GLAXOSMITHKLINE-A1013263A

PATIENT
  Age: 8 Year
  Sex: Female

DRUGS (2)
  1. VENTOLIN [Suspect]
     Indication: ASTHMA
     Dosage: 2PUFF AS REQUIRED
     Route: 055
     Dates: start: 2010
  2. UNKNOWN MEDICATION [Concomitant]
     Indication: ASTHMA

REACTIONS (1)
  - Abdominal pain upper [Not Recovered/Not Resolved]
